FAERS Safety Report 12775591 (Version 1)
Quarter: 2016Q3

REPORT INFORMATION
  Report Type: Spontaneous
  Country: US (occurrence: US)
  Receive Date: 20160923
  Receipt Date: 20160923
  Transmission Date: 20161109
  Serious: Yes (Disabling)
  Sender: FDA-Public Use
  Company Number: None

PATIENT
  Age: 78 Year
  Sex: Female
  Weight: 57.61 kg

DRUGS (3)
  1. LEVOTHYROXINE. [Concomitant]
     Active Substance: LEVOTHYROXINE
  2. JANUMET [Concomitant]
     Active Substance: METFORMIN HYDROCHLORIDE\SITAGLIPTIN PHOSPHATE
  3. CEFUROXIME. [Suspect]
     Active Substance: CEFUROXIME
     Indication: PHARYNGITIS STREPTOCOCCAL
     Dosage: CEFUROXIME 14 TABLETS (2 PER DAY) PO
     Route: 048
     Dates: start: 20160716, end: 20160724

REACTIONS (10)
  - Vomiting [None]
  - Micturition urgency [None]
  - Poor quality sleep [None]
  - Influenza [None]
  - Hyperhidrosis [None]
  - Lethargy [None]
  - Diarrhoea [None]
  - Dysuria [None]
  - Pollakiuria [None]
  - Pain [None]

NARRATIVE: CASE EVENT DATE: 20160716
